FAERS Safety Report 8952529 (Version 1)
Quarter: 2012Q4

REPORT INFORMATION
  Report Type: 
  Country: US (occurrence: US)
  Receive Date: 20121205
  Receipt Date: 20121205
  Transmission Date: 20130627
  Serious: Yes (Other)
  Sender: FDA-Public Use
  Company Number: US-VERTEX PHARMACEUTICALS INC.-2012-025458

PATIENT

DRUGS (3)
  1. INCIVEK [Suspect]
     Indication: HEPATITIS C
     Route: 048
  2. PEGYLATED INTERFERON ALFA-2A [Suspect]
     Indication: HEPATITIS C
  3. RIBAVIRIN [Suspect]
     Indication: HEPATITIS C

REACTIONS (14)
  - Skin burning sensation [Unknown]
  - Hepatic cirrhosis [Unknown]
  - Arrhythmia [Unknown]
  - Infection [Unknown]
  - Renal failure acute [None]
  - Dehydration [Unknown]
  - Fatigue [Unknown]
  - Hypokalaemia [Unknown]
  - Rash [Unknown]
  - Diarrhoea [Unknown]
  - Anaemia [None]
  - Depression [Unknown]
  - Anorectal discomfort [Unknown]
  - Drug ineffective [None]
